FAERS Safety Report 8726309 (Version 2)
Quarter: 2012Q4

REPORT INFORMATION
  Report Type: 
  Country: US (occurrence: US)
  Receive Date: 20120816
  Receipt Date: 20120912
  Transmission Date: 20130627
  Serious: Yes (Hospitalization, Other)
  Sender: FDA-Public Use
  Company Number: PHEH2012US015839

PATIENT
  Age: 46 Year
  Sex: Male

DRUGS (5)
  1. CLOZARIL [Suspect]
     Dosage: 400 mg, UNK
     Dates: end: 201202
  2. CLOZARIL [Suspect]
     Dosage: UNK UKN, UNK
  3. CLOZAPINE [Suspect]
     Dosage: 400 mg, UNK
     Dates: start: 20120217
  4. CLOZAPINE [Suspect]
     Dosage: 350 mg, UNK
  5. ZYPREXA [Concomitant]

REACTIONS (5)
  - Dehydration [Unknown]
  - Psychotic disorder [Unknown]
  - Blood pressure diastolic increased [Unknown]
  - Heart rate increased [Unknown]
  - Drug level increased [Unknown]
